FAERS Safety Report 6691645-7 (Version None)
Quarter: 2010Q2

REPORT INFORMATION
  Report Type: 
  Country: None (occurrence: None)
  Receive Date: 20100422
  Receipt Date: 20090406
  Transmission Date: 20101027
  Serious: Yes (Other)
  Sender: FDA-Public Use
  Company Number: US-ASTRAZENECA-2009UW08676

PATIENT
  Sex: Female
  Weight: 95.3 kg

DRUGS (7)
  1. TOPROL-XL [Suspect]
     Indication: ATRIAL FIBRILLATION
     Dosage: DAILY
     Route: 048
  2. TOPROL-XL [Suspect]
     Indication: HEART RATE IRREGULAR
     Dosage: DAILY
     Route: 048
  3. TOPROL-XL [Suspect]
     Route: 048
     Dates: start: 20090101
  4. TOPROL-XL [Suspect]
     Route: 048
     Dates: start: 20090101
  5. DIOVAN [Concomitant]
  6. LASIX [Concomitant]
  7. POTASSIUM [Concomitant]

REACTIONS (1)
  - ARRHYTHMIA [None]
